FAERS Safety Report 18335647 (Version 4)
Quarter: 2023Q1

REPORT INFORMATION
  Report Type: Spontaneous
  Country: US (occurrence: None)
  Receive Date: 20201001
  Receipt Date: 20230127
  Transmission Date: 20230417
  Serious: Yes (Hospitalization, Other)
  Sender: FDA-Public Use
  Company Number: 2020SF23293

PATIENT
  Age: 13390 Day
  Sex: Male

DRUGS (84)
  1. FARXIGA [Suspect]
     Active Substance: DAPAGLIFLOZIN PROPANEDIOL
     Indication: Type 2 diabetes mellitus
     Route: 048
     Dates: end: 201602
  2. FARXIGA [Suspect]
     Active Substance: DAPAGLIFLOZIN PROPANEDIOL
     Indication: Weight decreased
     Route: 048
     Dates: end: 201602
  3. FARXIGA [Suspect]
     Active Substance: DAPAGLIFLOZIN PROPANEDIOL
     Indication: Blood pressure decreased
     Route: 048
     Dates: end: 201602
  4. FARXIGA [Suspect]
     Active Substance: DAPAGLIFLOZIN PROPANEDIOL
     Indication: Type 2 diabetes mellitus
     Route: 048
     Dates: start: 201509, end: 20190408
  5. FARXIGA [Suspect]
     Active Substance: DAPAGLIFLOZIN PROPANEDIOL
     Indication: Weight decreased
     Route: 048
     Dates: start: 201509, end: 20190408
  6. FARXIGA [Suspect]
     Active Substance: DAPAGLIFLOZIN PROPANEDIOL
     Indication: Blood pressure decreased
     Route: 048
     Dates: start: 201509, end: 20190408
  7. FARXIGA [Suspect]
     Active Substance: DAPAGLIFLOZIN PROPANEDIOL
     Indication: Type 2 diabetes mellitus
     Route: 048
     Dates: start: 20150924, end: 201603
  8. FARXIGA [Suspect]
     Active Substance: DAPAGLIFLOZIN PROPANEDIOL
     Indication: Weight decreased
     Route: 048
     Dates: start: 20150924, end: 201603
  9. FARXIGA [Suspect]
     Active Substance: DAPAGLIFLOZIN PROPANEDIOL
     Indication: Blood pressure decreased
     Route: 048
     Dates: start: 20150924, end: 201603
  10. FARXIGA [Suspect]
     Active Substance: DAPAGLIFLOZIN PROPANEDIOL
     Indication: Type 2 diabetes mellitus
     Route: 048
     Dates: start: 20150924
  11. FARXIGA [Suspect]
     Active Substance: DAPAGLIFLOZIN PROPANEDIOL
     Indication: Weight decreased
     Route: 048
     Dates: start: 20150924
  12. FARXIGA [Suspect]
     Active Substance: DAPAGLIFLOZIN PROPANEDIOL
     Indication: Blood pressure decreased
     Route: 048
     Dates: start: 20150924
  13. FARXIGA [Suspect]
     Active Substance: DAPAGLIFLOZIN PROPANEDIOL
     Indication: Type 2 diabetes mellitus
     Route: 048
     Dates: start: 20161019
  14. FARXIGA [Suspect]
     Active Substance: DAPAGLIFLOZIN PROPANEDIOL
     Indication: Weight decreased
     Route: 048
     Dates: start: 20161019
  15. FARXIGA [Suspect]
     Active Substance: DAPAGLIFLOZIN PROPANEDIOL
     Indication: Blood pressure decreased
     Route: 048
     Dates: start: 20161019
  16. FARXIGA [Suspect]
     Active Substance: DAPAGLIFLOZIN PROPANEDIOL
     Indication: Type 2 diabetes mellitus
     Route: 048
  17. FARXIGA [Suspect]
     Active Substance: DAPAGLIFLOZIN PROPANEDIOL
     Indication: Weight decreased
     Route: 048
  18. FARXIGA [Suspect]
     Active Substance: DAPAGLIFLOZIN PROPANEDIOL
     Indication: Blood pressure decreased
     Route: 048
  19. DOXYCYCLINE [Concomitant]
     Active Substance: DOXYCYCLINE
  20. ZOSYN [Concomitant]
     Active Substance: PIPERACILLIN SODIUM\TAZOBACTAM SODIUM
  21. KEFLEX [Concomitant]
     Active Substance: CEPHALEXIN
  22. CLINDAMYCIN [Concomitant]
     Active Substance: CLINDAMYCIN
  23. VANCOMYCIN [Concomitant]
     Active Substance: VANCOMYCIN
  24. PROCARDIA [Concomitant]
     Active Substance: NIFEDIPINE
  25. COZAAR [Concomitant]
     Active Substance: LOSARTAN POTASSIUM
  26. LANTUS [Concomitant]
     Active Substance: INSULIN GLARGINE
  27. LEXAPRO [Concomitant]
     Active Substance: ESCITALOPRAM OXALATE
  28. NOVOLOG [Concomitant]
     Active Substance: INSULIN ASPART
  29. PROTONIX [Concomitant]
     Active Substance: PANTOPRAZOLE SODIUM
  30. ACETAMINOPHEN [Concomitant]
     Active Substance: ACETAMINOPHEN
  31. ATENOLOL [Concomitant]
     Active Substance: ATENOLOL
  32. LEVOTHYROXINE [Concomitant]
     Active Substance: LEVOTHYROXINE
  33. LIDOCAINE [Concomitant]
     Active Substance: LIDOCAINE
  34. MORPHINE [Concomitant]
     Active Substance: MORPHINE
  35. OXYBUTYNIN [Concomitant]
     Active Substance: OXYBUTYNIN
  36. LISINOPRIL [Concomitant]
     Active Substance: LISINOPRIL
  37. METFORMIN [Concomitant]
     Active Substance: METFORMIN HYDROCHLORIDE
  38. ASPIRIN [Concomitant]
     Active Substance: ASPIRIN
  39. SYNTHROID [Concomitant]
     Active Substance: LEVOTHYROXINE SODIUM
     Dates: start: 20121024
  40. CIPROFLOXACIN [Concomitant]
     Active Substance: CIPROFLOXACIN
     Dates: start: 20121201
  41. INDOMETHACIN [Concomitant]
     Active Substance: INDOMETHACIN
     Dates: start: 20130122
  42. ALPRAZOLAM [Concomitant]
     Active Substance: ALPRAZOLAM
     Dates: start: 20130125
  43. PHENAZOPYRIDINE HCL [Concomitant]
     Active Substance: PHENAZOPYRIDINE HYDROCHLORIDE
     Dates: start: 20130207
  44. LYRICA [Concomitant]
     Active Substance: PREGABALIN
     Dates: start: 20130311
  45. DOXYCYCLINE HYCLATE [Concomitant]
     Active Substance: DOXYCYCLINE HYCLATE
     Dates: start: 20130312
  46. SUMATRIPTAN SUCCINAT [Concomitant]
     Dates: start: 20130315
  47. IBUPROFEN [Concomitant]
     Active Substance: IBUPROFEN
     Dates: start: 20130523
  48. RANITIDINE HYDROCHLORIDE [Concomitant]
     Active Substance: RANITIDINE HYDROCHLORIDE
     Dates: start: 20131021
  49. HYDRALAZINE HCL [Concomitant]
     Active Substance: HYDRALAZINE HYDROCHLORIDE
     Dates: start: 20131021
  50. PAROXETINE HYDROCHLORIDE [Concomitant]
     Active Substance: PAROXETINE HYDROCHLORIDE
     Dates: start: 20140203
  51. AZITHROMYCIN [Concomitant]
     Active Substance: AZITHROMYCIN
     Dates: start: 20140303
  52. LEVOFLOXACIN [Concomitant]
     Active Substance: LEVOFLOXACIN
     Dates: start: 20140414
  53. TORSEMIDE [Concomitant]
     Active Substance: TORSEMIDE
     Dates: start: 20140912
  54. ISOSORBIDE MONONITRATE [Concomitant]
     Active Substance: ISOSORBIDE MONONITRATE
     Dates: start: 20170617
  55. DIGOXIN [Concomitant]
     Active Substance: DIGOXIN
     Dates: start: 20170708
  56. DILTIAZEM [Concomitant]
     Active Substance: DILTIAZEM
     Dates: start: 20170710
  57. FUROSEMIDE [Concomitant]
     Active Substance: FUROSEMIDE
     Dates: start: 20181105
  58. CLOPIDOGREL BISULFATE [Concomitant]
     Active Substance: CLOPIDOGREL BISULFATE
  59. ROSUVASTATIN CALCIUM [Concomitant]
     Active Substance: ROSUVASTATIN CALCIUM
     Dates: start: 20190611
  60. DIOVAN [Concomitant]
     Active Substance: VALSARTAN
     Dates: start: 20190611
  61. CARDIZEM [Concomitant]
     Active Substance: DILTIAZEM HYDROCHLORIDE
     Indication: Hypertension
     Dates: start: 20190611
  62. HUMALOG [Concomitant]
     Active Substance: INSULIN LISPRO
     Indication: Diabetes mellitus
     Dates: start: 20190611
  63. MAGNESIUM OXIDE [Concomitant]
     Active Substance: MAGNESIUM OXIDE
     Dates: start: 20190611
  64. CODEINE [Concomitant]
     Active Substance: CODEINE
     Dates: start: 20190611
  65. BIAXIN [Concomitant]
     Active Substance: CLARITHROMYCIN
     Dates: start: 20190611
  66. SHELLFISH, UNSPECIFIED [Concomitant]
     Active Substance: SHELLFISH, UNSPECIFIED
     Dates: start: 20190611
  67. MACROBID [Concomitant]
     Active Substance: NITROFURANTOIN\NITROFURANTOIN MONOHYDRATE
     Dates: start: 20190611
  68. CYCLOBENZAPRINE [Concomitant]
     Active Substance: CYCLOBENZAPRINE
     Dates: start: 20190611
  69. HYDROCHLOROTHIAZIDE [Concomitant]
     Active Substance: HYDROCHLOROTHIAZIDE
     Dates: start: 20190611
  70. MAGNESIUM SULFATE [Concomitant]
     Active Substance: MAGNESIUM SULFATE
     Dates: start: 20190611
  71. POTASSIUM CHLORIDE [Concomitant]
     Active Substance: POTASSIUM CHLORIDE
     Dates: start: 20190611
  72. SODIUM CHLORIDE [Concomitant]
     Active Substance: SODIUM CHLORIDE
     Dates: start: 20190611
  73. HEPARIN [Concomitant]
     Active Substance: HEPARIN SODIUM
     Dates: start: 20190611
  74. AMBIEN [Concomitant]
     Active Substance: ZOLPIDEM TARTRATE
     Dates: start: 20190611
  75. ONDANSETRON [Concomitant]
     Active Substance: ONDANSETRON
     Dates: start: 20190611
  76. CEFTRIAXONE [Concomitant]
     Active Substance: CEFTRIAXONE
     Dates: start: 20190611
  77. BENTYL [Concomitant]
     Active Substance: DICYCLOMINE HYDROCHLORIDE
     Dates: start: 20190611
  78. COLACE [Concomitant]
     Active Substance: DOCUSATE SODIUM
     Dates: start: 20190611
  79. FENTANYL [Concomitant]
     Active Substance: FENTANYL
     Dates: start: 20190611
  80. TORADOL [Concomitant]
     Active Substance: KETOROLAC TROMETHAMINE
     Dates: start: 20190611
  81. CALCIUM GLUCONATE [Concomitant]
     Active Substance: CALCIUM GLUCONATE
     Dates: start: 20190611
  82. LACTATED RINGERS SOLUTION [Concomitant]
     Active Substance: CALCIUM CHLORIDE\POTASSIUM CHLORIDE\SODIUM CHLORIDE\SODIUM LACTATE
     Dates: start: 20190611
  83. DIOVAN HCT [Concomitant]
     Active Substance: HYDROCHLOROTHIAZIDE\VALSARTAN
     Indication: Hypertension
     Dosage: 32 MG/12.5 MG
  84. COREG [Concomitant]
     Active Substance: CARVEDILOL
     Indication: Hypertension
     Dates: start: 20190611

REACTIONS (10)
  - Fournier^s gangrene [Unknown]
  - Sepsis [Unknown]
  - Necrotising fasciitis [Unknown]
  - Scrotal abscess [Unknown]
  - Cellulitis [Unknown]
  - Scrotal oedema [Unknown]
  - Testicular necrosis [Unknown]
  - Urinary tract infection [Unknown]
  - Genital abscess [Unknown]
  - Anal abscess [Unknown]

NARRATIVE: CASE EVENT DATE: 20141227
